FAERS Safety Report 4355037-8 (Version None)
Quarter: 2004Q2

REPORT INFORMATION
  Report Type: 
  Country: None (occurrence: None)
  Receive Date: 20040504
  Receipt Date: 20040423
  Transmission Date: 20050107
  Serious: No
  Sender: FDA-Public Use
  Company Number: 2004UW06681

PATIENT
  Age: 62 Year
  Sex: Female
  Weight: 91.8534 kg

DRUGS (4)
  1. CRESTOR [Suspect]
     Indication: HYPERLIPIDAEMIA
     Dosage: 10 MG QD PO
     Route: 048
     Dates: start: 20031230, end: 20040329
  2. PROPRANOLOL [Suspect]
     Indication: TREMOR
     Dosage: 160 MG QD
     Dates: start: 20030301
  3. PROSCAR [Suspect]
     Indication: HIDRADENITIS
     Dosage: 5 MG QD PO
     Route: 048
  4. CLARINEX [Concomitant]

REACTIONS (6)
  - ALANINE AMINOTRANSFERASE INCREASED [None]
  - DYSPNOEA [None]
  - JOINT SWELLING [None]
  - MUSCULAR WEAKNESS [None]
  - POLLAKIURIA [None]
  - WEIGHT INCREASED [None]
